FAERS Safety Report 24118586 (Version 1)
Quarter: 2024Q3

REPORT INFORMATION
  Report Type: Report from Study
  Country: ZA (occurrence: None)
  Receive Date: 20240722
  Receipt Date: 20240722
  Transmission Date: 20241016
  Serious: Yes (Other)
  Sender: ASTRAZENECA
  Company Number: 2022A116234

PATIENT
  Sex: Male

DRUGS (2)
  1. DAPAGLIFLOZIN [Suspect]
     Active Substance: DAPAGLIFLOZIN
     Route: 048
  2. INSULIN ASPART [Concomitant]
     Active Substance: INSULIN ASPART
     Dosage: 30 FLEXPEN
     Route: 065

REACTIONS (1)
  - Cerebrovascular accident [Unknown]
